FAERS Safety Report 7926891-5 (Version None)
Quarter: 2011Q4

REPORT INFORMATION
  Report Type: 
  Country: None (occurrence: None)
  Receive Date: 20111116
  Receipt Date: 20111102
  Transmission Date: 20120403
  Serious: Yes (Hospitalization)
  Sender: FDA-Public Use
  Company Number: 2011-4413

PATIENT
  Age: 43 Year
  Sex: Female
  Weight: 48 kg

DRUGS (4)
  1. DYSPORT [Suspect]
     Indication: OFF LABEL USE
     Dosage: 60 UNITS (60 UNITS), SINGLE CYCLE)
     Dates: start: 20111028, end: 20111028
  2. DYSPORT [Suspect]
     Indication: SKIN COSMETIC PROCEDURE
     Dosage: 60 UNITS (60 UNITS), SINGLE CYCLE)
     Dates: start: 20111028, end: 20111028
  3. RESTYLANE (HYALURONIC ACID) [Concomitant]
  4. ABOBOTULINUMTOXIN A [Suspect]

REACTIONS (3)
  - WRONG TECHNIQUE IN DRUG USAGE PROCESS [None]
  - INCORRECT DOSE ADMINISTERED [None]
  - DYSPHAGIA [None]
